FAERS Safety Report 25213167 (Version 2)
Quarter: 2025Q3

REPORT INFORMATION
  Report Type: Spontaneous
  Country: IN (occurrence: IN)
  Receive Date: 20250418
  Receipt Date: 20250716
  Transmission Date: 20251020
  Serious: Yes (Other)
  Sender: PFIZER
  Company Number: IN-PFIZER INC-PV202500042728

PATIENT
  Age: 48 Year
  Sex: Male
  Weight: 67 kg

DRUGS (1)
  1. LORLATINIB [Suspect]
     Active Substance: LORLATINIB
     Indication: Lung cancer metastatic
     Dosage: 100 MG, 1X/DAY
     Route: 048
     Dates: start: 20250310

REACTIONS (5)
  - Syncope [Unknown]
  - Blood pressure increased [Not Recovered/Not Resolved]
  - Contrast media allergy [Unknown]
  - Dysarthria [Unknown]
  - Peripheral swelling [Unknown]

NARRATIVE: CASE EVENT DATE: 20250310
